FAERS Safety Report 21729421 (Version 1)
Quarter: 2022Q4

REPORT INFORMATION
  Report Type: Spontaneous
  Country: US (occurrence: US)
  Receive Date: 20221214
  Receipt Date: 20221214
  Transmission Date: 20230113
  Serious: Yes (Other)
  Sender: FDA-Public Use
  Company Number: US-BRISTOL-MYERS SQUIBB COMPANY-2022-151702

PATIENT
  Age: 74 Year
  Sex: Female

DRUGS (2)
  1. OPDIVO [Suspect]
     Active Substance: NIVOLUMAB
     Indication: Neoplasm malignant
     Dosage: DOSE : 163MG|54MG;     FREQ : EVERY 2 WEEKS|EVERY 6 WEEKS INFUSION
     Dates: start: 20220714
  2. YERVOY [Suspect]
     Active Substance: IPILIMUMAB
     Indication: Neoplasm malignant
     Dosage: DOSE : 163MG|54MG;     FREQ : EVERY 2 WEEKS|EVERY 6 WEEKS INFUSION
     Dates: start: 20220714

REACTIONS (2)
  - Malignant neoplasm progression [Unknown]
  - Off label use [Unknown]
